FAERS Safety Report 5221744-8 (Version None)
Quarter: 2007Q1

REPORT INFORMATION
  Report Type: 
  Country: None (occurrence: None)
  Receive Date: 20070129
  Receipt Date: 20070125
  Transmission Date: 20070707
  Serious: Yes (Hospitalization, Other)
  Sender: FDA-Public Use
  Company Number: NL-BRISTOL-MYERS SQUIBB COMPANY-13609300

PATIENT
  Age: 55 Year
  Sex: Female

DRUGS (5)
  1. CISPLATIN [Suspect]
     Indication: ENDOMETRIAL CANCER
     Dates: start: 20050802, end: 20050802
  2. DOXORUBICIN HCL [Suspect]
     Indication: ENDOMETRIAL CANCER
     Dates: start: 20050802, end: 20050802
  3. LEVOTHYROXINE SODIUM [Concomitant]
  4. AMARYL [Concomitant]
  5. ATORVASTATIN CALCIUM [Concomitant]

REACTIONS (6)
  - BLOOD GLUCOSE INCREASED [None]
  - BLOOD POTASSIUM DECREASED [None]
  - DIARRHOEA [None]
  - FEBRILE NEUTROPENIA [None]
  - MOUTH ULCERATION [None]
  - PLATELET COUNT DECREASED [None]
